FAERS Safety Report 5742832-3 (Version None)
Quarter: 2008Q2

REPORT INFORMATION
  Report Type: 
  Country: None (occurrence: None)
  Receive Date: 20080515
  Receipt Date: 20080515
  Transmission Date: 20081010
  Serious: Yes (Hospitalization)
  Sender: FDA-Public Use
  Company Number: None

PATIENT
  Age: 58 Year
  Sex: Male
  Weight: 119.7 kg

DRUGS (1)
  1. IOHEXOL [Suspect]
     Indication: ANGIOGRAM
     Dosage: 140 ML ONCE IV
     Route: 042
     Dates: start: 20080229, end: 20080229

REACTIONS (4)
  - COUGH [None]
  - ENDOTRACHEAL INTUBATION [None]
  - TACHYPNOEA [None]
  - WHEEZING [None]
